FAERS Safety Report 5847908-8 (Version None)
Quarter: 2008Q3

REPORT INFORMATION
  Report Type: 
  Country: None (occurrence: None)
  Receive Date: 20080818
  Receipt Date: 20080808
  Transmission Date: 20090109
  Serious: Yes (Other)
  Sender: FDA-Public Use
  Company Number: GB-ASTRAZENECA-2008GB01547

PATIENT
  Sex: Female

DRUGS (2)
  1. QUETIAPINE FUMARATE [Suspect]
     Route: 048
  2. QUETIAPINE FUMARATE [Suspect]
     Route: 048

REACTIONS (2)
  - ELECTROCARDIOGRAM QT PROLONGED [None]
  - EMOTIONAL DISORDER [None]
